FAERS Safety Report 5151146-4 (Version None)
Quarter: 2006Q4

REPORT INFORMATION
  Report Type: 
  Country: None (occurrence: None)
  Receive Date: 20061113
  Receipt Date: 20061113
  Transmission Date: 20070319
  Serious: Yes (Life-Threatening)
  Sender: FDA-Public Use
  Company Number: None

PATIENT

DRUGS (2)
  1. CELEXA [Suspect]
     Indication: DEPRESSION
     Dosage: 10MG  DAILY  PO
     Route: 048
  2. CELEXA [Suspect]
     Indication: DEPRESSION
     Dosage: 20MG  DAILY  PO  SEVERAL DAYS
     Route: 048

REACTIONS (7)
  - BRAIN DAMAGE [None]
  - FALL [None]
  - HEADACHE [None]
  - INTENTIONAL SELF-INJURY [None]
  - LUNG DISORDER [None]
  - PAIN [None]
  - PANIC REACTION [None]
